FAERS Safety Report 18042785 (Version 1)
Quarter: 2020Q3

REPORT INFORMATION
  Report Type: Spontaneous
  Country: GB (occurrence: GB)
  Receive Date: 20200720
  Receipt Date: 20200720
  Transmission Date: 20201103
  Serious: Yes (Disabling)
  Sender: FDA-Public Use
  Company Number: NVSC2020GB200570

PATIENT
  Age: 55 Year
  Sex: Female
  Weight: 81 kg

DRUGS (1)
  1. ESTRADIOL. [Suspect]
     Active Substance: ESTRADIOL
     Indication: MENOPAUSE
     Dosage: 4 DF, QD (2 PUMPS EACH MORNING AND 2 PUMPS EACH EVENING)
     Route: 062
     Dates: start: 20200416, end: 20200624

REACTIONS (8)
  - Urinary tract infection [Unknown]
  - Nipple pain [Recovering/Resolving]
  - Emotional disorder [Recovering/Resolving]
  - Hot flush [Recovering/Resolving]
  - Condition aggravated [Unknown]
  - Insomnia [Recovering/Resolving]
  - Disturbance in attention [Recovering/Resolving]
  - Anxiety [Recovering/Resolving]

NARRATIVE: CASE EVENT DATE: 20200422
